FAERS Safety Report 8169209-8 (Version None)
Quarter: 2012Q1

REPORT INFORMATION
  Report Type: 
  Country: None (occurrence: None)
  Receive Date: 20120227
  Receipt Date: 20120216
  Transmission Date: 20120608
  Serious: Yes (Hospitalization, Disabling, Other)
  Sender: FDA-Public Use
  Company Number: BR-ASTRAZENECA-2011SE42807

PATIENT
  Age: 86 Year
  Sex: Female
  Weight: 80 kg

DRUGS (20)
  1. NEXIUM [Suspect]
     Indication: GASTROOESOPHAGEAL REFLUX DISEASE
     Route: 048
     Dates: start: 20090101
  2. DIPYRONE TAB [Concomitant]
     Indication: OSTEOARTHRITIS
     Route: 048
  3. AMLODIPINE [Concomitant]
     Indication: HYPERTENSION
     Route: 048
     Dates: start: 20090101
  4. ASPIRIN [Concomitant]
     Route: 048
  5. NEXIUM [Suspect]
     Indication: HERNIA
     Route: 048
     Dates: start: 20090101
  6. NEXIUM [Suspect]
     Indication: GASTRITIS
     Route: 048
     Dates: start: 20090101
  7. CENTRUM [Concomitant]
     Route: 048
  8. PULMICORT [Suspect]
     Dosage: 0.25 MG/ML TWO TIMES A DAY
     Route: 055
     Dates: start: 20110101
  9. LIPITOR [Concomitant]
     Route: 048
  10. MOTILIUM [Concomitant]
     Route: 048
  11. PULMICORT [Suspect]
     Indication: LUNG INFECTION
     Dosage: 0.25 MG/ML AS REQUIRED
     Route: 055
     Dates: start: 20100101, end: 20110101
  12. PULMICORT [Suspect]
     Dosage: 0.25 MG/ML TWO TIMES A DAY
     Route: 055
     Dates: start: 20110101
  13. LOSARTAN POTASSIUM [Concomitant]
     Indication: HYPERTENSION
     Route: 048
     Dates: start: 20090101
  14. BEROTEC [Concomitant]
     Indication: LUNG INFECTION
     Route: 055
     Dates: start: 20100101
  15. PULMICORT [Suspect]
     Indication: PNEUMONIA
     Dosage: 0.25 MG/ML AS REQUIRED
     Route: 055
     Dates: start: 20100101, end: 20110101
  16. ARCOXIA [Concomitant]
     Indication: OSTEOARTHRITIS
     Route: 048
  17. DIAMICRON [Concomitant]
     Indication: DIABETES MELLITUS
     Route: 048
  18. CITALOPRAM HYDROBROMIDE [Concomitant]
     Route: 048
  19. CEBRALAT [Concomitant]
     Indication: OSTEOARTHRITIS
     Route: 048
     Dates: start: 20090101
  20. ATROVENT [Concomitant]
     Indication: LUNG INFECTION
     Route: 055
     Dates: start: 20100101

REACTIONS (6)
  - OSTEOARTHRITIS [None]
  - HYPOTENSION [None]
  - URINARY TRACT INFECTION [None]
  - ARTHRALGIA [None]
  - PNEUMONIA [None]
  - LUNG INFECTION [None]
